FAERS Safety Report 13440949 (Version 1)
Quarter: 2017Q2

REPORT INFORMATION
  Report Type: Spontaneous
  Country: None (occurrence: FR)
  Receive Date: 20170413
  Receipt Date: 20170413
  Transmission Date: 20170830
  Serious: Yes (Life-Threatening, Hospitalization)
  Sender: FDA-Public Use
  Company Number: FR-MEDAC PHARMA, INC.-1065368

PATIENT
  Age: 53 Year
  Sex: Female
  Weight: 77 kg

DRUGS (4)
  1. ESTRADIOL. [Concomitant]
     Active Substance: ESTRADIOL
     Route: 062
     Dates: start: 201509, end: 201601
  2. METOJECT [Suspect]
     Active Substance: METHOTREXATE SODIUM
     Indication: ANKYLOSING SPONDYLITIS
     Route: 058
     Dates: start: 201609, end: 20160920
  3. PROGESTERONE. [Concomitant]
     Active Substance: PROGESTERONE
     Route: 048
     Dates: start: 201509, end: 201601
  4. SIMPONI [Suspect]
     Active Substance: GOLIMUMAB
     Route: 058
     Dates: start: 2014, end: 201601

REACTIONS (5)
  - Pulmonary embolism [Recovered/Resolved]
  - Palpitations [Recovered/Resolved]
  - Dyspnoea [Recovered/Resolved]
  - Product use issue [None]
  - Pyrexia [Recovered/Resolved]

NARRATIVE: CASE EVENT DATE: 20160927
